FAERS Safety Report 8588385-6 (Version None)
Quarter: 2012Q3

REPORT INFORMATION
  Report Type: 
  Country: None (occurrence: None)
  Receive Date: 20120813
  Receipt Date: 20120802
  Transmission Date: 20120928
  Serious: Yes (Death, Life-Threatening, Hospitalization)
  Sender: FDA-Public Use
  Company Number: GR-MPIJNJ-2012-03016

PATIENT

DRUGS (5)
  1. DEXAMETHASONE [Concomitant]
     Indication: WALDENSTROM'S MACROGLOBULINAEMIA
     Dosage: 24 MG, QD
  2. RITUXIMAB [Concomitant]
     Indication: WALDENSTROM'S MACROGLOBULINAEMIA
     Dosage: 700 MG, UNK
  3. BARACLUDE [Concomitant]
     Indication: HEPATITIS B
  4. VELCADE [Suspect]
     Indication: WALDENSTROM'S MACROGLOBULINAEMIA
     Dosage: 1.6 MG/M2, CYCLIC
     Route: 042
     Dates: start: 20120421
  5. LAMIVUDINE [Concomitant]
     Indication: HEPATITIS B

REACTIONS (5)
  - OFF LABEL USE [None]
  - INFECTION [None]
  - CARDIAC ARREST [None]
  - RESPIRATORY ARREST [None]
  - PULMONARY HAEMORRHAGE [None]
